FAERS Safety Report 21120997 (Version 1)
Quarter: 2022Q3

REPORT INFORMATION
  Report Type: Report from Study
  Country: BR (occurrence: BR)
  Receive Date: 20220722
  Receipt Date: 20220722
  Transmission Date: 20221027
  Serious: Yes (Hospitalization, Other)
  Sender: FDA-Public Use
  Company Number: BR-UCBSA-2022040274

PATIENT
  Sex: Male
  Weight: 60 kg

DRUGS (2)
  1. CERTOLIZUMAB PEGOL [Suspect]
     Active Substance: CERTOLIZUMAB PEGOL
     Indication: Ankylosing spondylitis
     Dosage: 200 MILLIGRAM, EV 15 DAYS
     Route: 058
     Dates: start: 2018, end: 2019
  2. INDOMETHACIN [Concomitant]
     Active Substance: INDOMETHACIN
     Indication: Pain
     Dosage: 4 DOSAGE FORM, ONCE DAILY (QD)
     Route: 048
     Dates: start: 2019

REACTIONS (5)
  - Pulmonary tuberculosis [Recovered/Resolved]
  - Ankylosing spondylitis [Not Recovered/Not Resolved]
  - Night sweats [Recovered/Resolved]
  - Dyspnoea [Recovered/Resolved]
  - Torticollis [Not Recovered/Not Resolved]

NARRATIVE: CASE EVENT DATE: 20180101
